FAERS Safety Report 9788850 (Version 1)
Quarter: 2013Q4

REPORT INFORMATION
  Report Type: Spontaneous
  Country: DE (occurrence: DE)
  Receive Date: 20131230
  Receipt Date: 20131230
  Transmission Date: 20140711
  Serious: Yes (Congenital Anomaly)
  Sender: FDA-Public Use
  Company Number: DE-TEVA-452144GER

PATIENT
  Age: 1 Day
  Sex: Female

DRUGS (9)
  1. AMIODARON [Suspect]
     Route: 064
  2. GABAPENTIN [Suspect]
     Route: 064
  3. BISOPROLOL [Suspect]
     Route: 064
  4. AMITRIPTYLIN [Suspect]
     Route: 064
  5. BUPRENORPHINE [Suspect]
     Route: 064
  6. OMEPRAZOL [Concomitant]
     Route: 064
  7. MOVICOL [Concomitant]
     Route: 064
  8. ACETYLSALICYLSAEURE [Concomitant]
     Route: 064
  9. VITAVERLAN [Concomitant]
     Route: 064

REACTIONS (3)
  - Ventricular septal defect [Recovered/Resolved]
  - Small for dates baby [Recovered/Resolved]
  - Atrial septal defect [Not Recovered/Not Resolved]
